FAERS Safety Report 4368053-7 (Version None)
Quarter: 2004Q2

REPORT INFORMATION
  Report Type: 
  Country: None (occurrence: None)
  Receive Date: 20040527
  Receipt Date: 20040325
  Transmission Date: 20050107
  Serious: No
  Sender: FDA-Public Use
  Company Number: 204244

PATIENT
  Age: 45 Year
  Sex: Female
  Weight: 79.4 kg

DRUGS (1)
  1. RAPTIVA [Suspect]
     Indication: PSORIASIS
     Dosage: 1 MG/KG, 1/WEEK, SUBCUTANEOUS
     Route: 058
     Dates: start: 20031201, end: 20040113

REACTIONS (2)
  - CELLULITIS [None]
  - URTICARIA [None]
